FAERS Safety Report 11847224 (Version 2)
Quarter: 2016Q2

REPORT INFORMATION
  Report Type: Report from Study
  Country: US (occurrence: US)
  Receive Date: 20151217
  Receipt Date: 20160525
  Transmission Date: 20160815
  Serious: Yes (Death)
  Sender: FDA-Public Use
  Company Number: US-ASTELLAS-2015US047378

PATIENT
  Sex: Female

DRUGS (11)
  1. SYNTHROID [Concomitant]
     Active Substance: LEVOTHYROXINE SODIUM
     Dosage: 122 UNIT NOT REPORTED, UNKNOWN FREQ.
     Route: 065
     Dates: start: 201403
  2. ERLOTINIB [Suspect]
     Active Substance: ERLOTINIB
     Route: 065
  3. ERLOTINIB [Suspect]
     Active Substance: ERLOTINIB
     Indication: LUNG NEOPLASM MALIGNANT
     Route: 065
     Dates: start: 2013
  4. PROVENTIL [Concomitant]
     Active Substance: ALBUTEROL
     Indication: ASTHMA
     Dosage: UNK UNK, UNKNOWN FREQ.
     Route: 065
  5. MOTRIN [Concomitant]
     Active Substance: IBUPROFEN
     Indication: BACK PAIN
     Dosage: UNK UNK, UNKNOWN FREQ.
     Route: 065
  6. ZOMETA [Concomitant]
     Active Substance: ZOLEDRONIC ACID
     Indication: PRODUCT USED FOR UNKNOWN INDICATION
     Dosage: UNK UNK, EVERY 3 WEEKS
     Route: 065
     Dates: start: 201401
  7. AVASTIN [Suspect]
     Active Substance: BEVACIZUMAB
     Indication: LUNG NEOPLASM MALIGNANT
     Dosage: DOSE IS WHATEVER HEAVY PROTOCOL IS, EVERY 3 WEEKS
     Route: 065
     Dates: start: 201401
  8. CARBOPLATIN. [Concomitant]
     Active Substance: CARBOPLATIN
     Indication: LUNG CARCINOMA CELL TYPE UNSPECIFIED STAGE IV
     Dosage: UNK UNK, EVERY 3 WEEKS
     Route: 065
     Dates: start: 201401, end: 201406
  9. BENADRYL [Concomitant]
     Active Substance: DIPHENHYDRAMINE HYDROCHLORIDE
     Indication: PRODUCT USED FOR UNKNOWN INDICATION
     Route: 065
  10. TAXOTERE [Concomitant]
     Active Substance: DOCETAXEL
     Indication: LUNG CARCINOMA CELL TYPE UNSPECIFIED STAGE IV
     Dosage: UNK UNK, EVERY 3 WEEKS
     Route: 065
     Dates: start: 201401, end: 201406
  11. SYNTHROID [Concomitant]
     Active Substance: LEVOTHYROXINE SODIUM
     Indication: PRODUCT USED FOR UNKNOWN INDICATION
     Dosage: 825 UNIT NOT REPORTED, UNKNOWN FREQ.
     Route: 065
     Dates: end: 201403

REACTIONS (12)
  - Blood thyroid stimulating hormone increased [Recovered/Resolved]
  - Confusional state [Recovering/Resolving]
  - Death [Fatal]
  - Speech disorder [Not Recovered/Not Resolved]
  - Feeling hot [Not Recovered/Not Resolved]
  - Weight decreased [Not Recovered/Not Resolved]
  - Diarrhoea [Not Recovered/Not Resolved]
  - Drug ineffective [Unknown]
  - Feeding disorder [Recovered/Resolved]
  - Hair growth abnormal [Not Recovered/Not Resolved]
  - Dysgeusia [Not Recovered/Not Resolved]
  - Acne [Not Recovered/Not Resolved]

NARRATIVE: CASE EVENT DATE: 2013
